FAERS Safety Report 11078990 (Version 1)
Quarter: 2015Q2

REPORT INFORMATION
  Report Type: Spontaneous
  Country: US (occurrence: US)
  Receive Date: 20150430
  Receipt Date: 20150430
  Transmission Date: 20150821
  Serious: Yes (Other)
  Sender: FDA-Public Use
  Company Number: US-PFIZER INC-2015143195

PATIENT
  Age: 72 Year
  Sex: Female
  Weight: 100 kg

DRUGS (1)
  1. IBRANCE [Suspect]
     Active Substance: PALBOCICLIB
     Indication: BREAST CANCER METASTATIC
     Dosage: 125 MG, 1X/DAY CYCLIC
     Route: 048
     Dates: start: 20150311, end: 201503

REACTIONS (5)
  - White blood cell count decreased [Unknown]
  - Dyspepsia [Not Recovered/Not Resolved]
  - Respiratory tract infection [Unknown]
  - Malaise [Not Recovered/Not Resolved]
  - Gastrointestinal disorder [Unknown]
